FAERS Safety Report 9723995 (Version 2)
Quarter: 2014Q1

REPORT INFORMATION
  Report Type: Spontaneous
  Country: US (occurrence: US)
  Receive Date: 20131202
  Receipt Date: 20140102
  Transmission Date: 20141002
  Serious: No
  Sender: FDA-Public Use
  Company Number: US-AMGEN-USASP2013079461

PATIENT
  Age: 40 Year
  Sex: Female

DRUGS (9)
  1. ENBREL [Suspect]
     Indication: PRODUCT USED FOR UNKNOWN INDICATION
     Dosage: UNK
     Route: 065
  2. XELJANZ [Suspect]
     Indication: RHEUMATOID ARTHRITIS
     Dosage: 5 MG, QD
     Route: 048
     Dates: start: 201211, end: 201309
  3. OXYCODONE/APAP                     /00867901/ [Concomitant]
     Dosage: UNK
  4. METHYLPREDNISOLONE [Concomitant]
     Dosage: 8 MG, QID, FOR SEVERAL MONTHS
  5. PLAQUENIL                          /00072602/ [Concomitant]
     Dosage: UNK
  6. CELEBREX [Concomitant]
     Dosage: UNK
  7. MINOCIN [Concomitant]
     Dosage: UNK
  8. ZEBETA [Concomitant]
     Dosage: UNK
  9. TOPAMAX [Concomitant]
     Dosage: UNK

REACTIONS (2)
  - Weight increased [Recovering/Resolving]
  - Drug hypersensitivity [Unknown]
